FAERS Safety Report 12150954 (Version 1)
Quarter: 2016Q1

REPORT INFORMATION
  Report Type: Spontaneous
  Country: FR (occurrence: FR)
  Receive Date: 20160304
  Receipt Date: 20160304
  Transmission Date: 20160526
  Serious: Yes (Hospitalization)
  Sender: FDA-Public Use
  Company Number: FR-SA-2016SA037953

PATIENT
  Age: 60 Year
  Sex: Male

DRUGS (20)
  1. TAHOR [Suspect]
     Active Substance: ATORVASTATIN CALCIUM
     Route: 048
     Dates: end: 20150309
  2. ALPRESS [Suspect]
     Active Substance: PRAZOSIN
     Route: 048
     Dates: start: 20150312
  3. CORTANCYL [Concomitant]
     Active Substance: PREDNISONE
  4. DOLIPRANE [Concomitant]
     Active Substance: ACETAMINOPHEN
  5. LERCAN [Suspect]
     Active Substance: LERCANIDIPINE
     Route: 048
     Dates: end: 20150309
  6. INEXIUM [Suspect]
     Active Substance: ESOMEPRAZOLE
     Route: 048
     Dates: end: 20150309
  7. COLCHICINE. [Suspect]
     Active Substance: COLCHICINE
     Route: 048
     Dates: start: 20150304, end: 20150309
  8. ALPRESS [Suspect]
     Active Substance: PRAZOSIN
     Route: 048
     Dates: end: 20150309
  9. HYPERIUM [Suspect]
     Active Substance: RILMENIDINE PHOSPHATE
     Route: 048
     Dates: end: 20150309
  10. HYPERIUM [Suspect]
     Active Substance: RILMENIDINE PHOSPHATE
     Route: 048
     Dates: start: 20150312
  11. LASILIX [Suspect]
     Active Substance: FUROSEMIDE
     Route: 048
     Dates: end: 20150309
  12. LERCAN [Suspect]
     Active Substance: LERCANIDIPINE
     Route: 048
     Dates: start: 20150313
  13. BISOCE [Concomitant]
     Active Substance: BISOPROLOL
  14. APROVEL [Suspect]
     Active Substance: IRBESARTAN
     Route: 048
     Dates: end: 20150309
  15. APROVEL [Suspect]
     Active Substance: IRBESARTAN
     Route: 048
     Dates: start: 20150312
  16. LASILIX [Suspect]
     Active Substance: FUROSEMIDE
     Route: 048
     Dates: start: 20150315
  17. ARANESP [Concomitant]
     Active Substance: DARBEPOETIN ALFA
  18. KARDEGIC [Concomitant]
     Active Substance: ASPIRIN LYSINE
  19. CELLCEPT [Concomitant]
     Active Substance: MYCOPHENOLATE MOFETIL\MYCOPHENOLATE MOFETIL HYDROCHLORIDE
  20. NEORAL [Concomitant]
     Active Substance: CYCLOSPORINE

REACTIONS (7)
  - Thrombocytopenia [Recovered/Resolved]
  - Diarrhoea [Recovered/Resolved]
  - Hyperkalaemia [Recovered/Resolved]
  - Burning sensation [Recovered/Resolved]
  - Arthralgia [Recovering/Resolving]
  - General physical health deterioration [Recovered/Resolved]
  - Rhabdomyolysis [Recovered/Resolved]

NARRATIVE: CASE EVENT DATE: 20150305
